FAERS Safety Report 8787796 (Version 1)
Quarter: 2012Q4

REPORT INFORMATION
  Report Type: 
  Country: US (occurrence: US)
  Receive Date: 20120914
  Receipt Date: 20120914
  Transmission Date: 20130627
  Serious: No
  Sender: FDA-Public Use
  Company Number: US-VERTEX PHARMACEUTICAL INC.-AE-2012-004812

PATIENT
  Age: 63 Year
  Sex: Female
  Weight: 67.73 kg

DRUGS (15)
  1. INCIVEK [Suspect]
     Indication: HEPATITIS C
     Route: 048
     Dates: start: 20120220, end: 20120504
  2. PEGASYS [Concomitant]
     Indication: HEPATITIS C
     Route: 058
     Dates: start: 20120210
  3. RIBASPHERE [Concomitant]
     Indication: HEPATITIS C
     Route: 048
     Dates: start: 20120210
  4. BENICAR HCT [Concomitant]
  5. BIOTIN [Concomitant]
  6. BONIVA [Concomitant]
  7. CITRACAL [Concomitant]
  8. COQ10 [Concomitant]
  9. EST ESTROGENS [Concomitant]
  10. LORAZEPAM [Concomitant]
  11. METHOCARBAMOL [Concomitant]
  12. MULTIVITAMIN [Concomitant]
  13. NAPROXEN [Concomitant]
  14. VOLTAREN [Concomitant]
  15. XYZAL [Concomitant]

REACTIONS (5)
  - Arthralgia [Not Recovered/Not Resolved]
  - Myalgia [Not Recovered/Not Resolved]
  - Blood calcium decreased [Unknown]
  - Fatigue [Unknown]
  - Dermatitis [Recovered/Resolved]
